FAERS Safety Report 8567782-9 (Version None)
Quarter: 2012Q3

REPORT INFORMATION
  Report Type: 
  Country: None (occurrence: None)
  Receive Date: 20120803
  Receipt Date: 20120723
  Transmission Date: 20120928
  Serious: Yes (Life-Threatening, Hospitalization)
  Sender: FDA-Public Use
  Company Number: US-009507513-1207USA011238

PATIENT

DRUGS (4)
  1. VERAPAMIL [Suspect]
     Dosage: 360 MG, UNK
     Route: 048
  2. ZOCOR [Suspect]
     Dosage: 80 MG, UNK
     Route: 048
  3. VERAPAMIL [Suspect]
     Dosage: 240 UNK, UNK
     Route: 048
  4. MARCUMAR [Suspect]
     Route: 048

REACTIONS (3)
  - SKIN DISORDER [None]
  - RHABDOMYOLYSIS [None]
  - TRANSAMINASES INCREASED [None]
